FAERS Safety Report 14942079 (Version 1)
Quarter: 2018Q2

REPORT INFORMATION
  Report Type: Report from Study
  Country: BR (occurrence: BR)
  Receive Date: 20180527
  Receipt Date: 20180527
  Transmission Date: 20180711
  Serious: Yes (Other)
  Sender: FDA-Public Use
  Company Number: PHHY2017BR109646

PATIENT
  Sex: Female
  Weight: 71 kg

DRUGS (5)
  1. COSENTYX [Suspect]
     Active Substance: SECUKINUMAB
     Indication: ANKYLOSING SPONDYLITIS
     Dosage: 1 DF, UNK
     Route: 058
     Dates: start: 20170802
  2. COSENTYX [Suspect]
     Active Substance: SECUKINUMAB
     Dosage: UNK
     Route: 065
     Dates: start: 20180310
  3. COSENTYX [Suspect]
     Active Substance: SECUKINUMAB
     Dosage: 1 DF, UNK
     Route: 058
  4. COSENTYX [Suspect]
     Active Substance: SECUKINUMAB
     Dosage: 1 DF, UNK
     Route: 058
     Dates: start: 20170809
  5. INFLIXIMAB [Concomitant]
     Active Substance: INFLIXIMAB
     Indication: ANKYLOSING SPONDYLITIS
     Route: 065

REACTIONS (10)
  - White blood cell count decreased [Unknown]
  - Weight increased [Unknown]
  - Pain [Unknown]
  - Drug ineffective [Unknown]
  - Ankylosing spondylitis [Unknown]
  - Malaise [Unknown]
  - Neck pain [Unknown]
  - Arthralgia [Unknown]
  - Movement disorder [Unknown]
  - Pain in extremity [Unknown]
